FAERS Safety Report 14275801 (Version 2)
Quarter: 2018Q1

REPORT INFORMATION
  Report Type: Spontaneous
  Country: US (occurrence: US)
  Receive Date: 20171212
  Receipt Date: 20180124
  Transmission Date: 20180508
  Serious: No
  Sender: FDA-Public Use
  Company Number: US-VISTAPHARM, INC.-VER201707-000224

PATIENT

DRUGS (1)
  1. METHADONE [Suspect]
     Active Substance: METHADONE HYDROCHLORIDE
     Indication: PRODUCT USED FOR UNKNOWN INDICATION

REACTIONS (6)
  - Mood swings [Unknown]
  - Libido decreased [Unknown]
  - Vomiting [Unknown]
  - Abdominal pain upper [Unknown]
  - Fatigue [Unknown]
  - Drug effect incomplete [Unknown]
